FAERS Safety Report 25608734 (Version 2)
Quarter: 2025Q3

REPORT INFORMATION
  Report Type: Report from Study
  Country: US (occurrence: US)
  Receive Date: 20250726
  Receipt Date: 20250805
  Transmission Date: 20251020
  Serious: Yes (Other)
  Sender: AUROBINDO
  Company Number: US-AUROBINDO-AUR-APL-2025-037469

PATIENT
  Age: 3 Year
  Sex: Male

DRUGS (12)
  1. CARBOPLATIN [Suspect]
     Active Substance: CARBOPLATIN
     Indication: Marfan^s syndrome
     Route: 065
  2. CARBOPLATIN [Suspect]
     Active Substance: CARBOPLATIN
     Indication: Astrocytoma
  3. LENALIDOMIDE [Suspect]
     Active Substance: LENALIDOMIDE
     Indication: Marfan^s syndrome
     Route: 065
  4. LENALIDOMIDE [Suspect]
     Active Substance: LENALIDOMIDE
     Indication: Astrocytoma
  5. VINBLASTINE [Suspect]
     Active Substance: VINBLASTINE
     Indication: Marfan^s syndrome
     Route: 065
  6. VINBLASTINE [Suspect]
     Active Substance: VINBLASTINE
     Indication: Astrocytoma
  7. BINIMETINIB [Concomitant]
     Active Substance: BINIMETINIB
     Indication: Marfan^s syndrome
     Dosage: 45 MILLIGRAM, TWO TIMES A DAY
     Route: 065
  8. BINIMETINIB [Concomitant]
     Active Substance: BINIMETINIB
     Indication: Astrocytoma
  9. HYDROXYCHLOROQUINE [Concomitant]
     Active Substance: HYDROXYCHLOROQUINE
     Indication: Marfan^s syndrome
     Route: 065
  10. HYDROXYCHLOROQUINE [Concomitant]
     Active Substance: HYDROXYCHLOROQUINE
     Indication: Astrocytoma
  11. TRAMETINIB [Concomitant]
     Active Substance: TRAMETINIB
     Indication: Marfan^s syndrome
     Dosage: 1 MILLIGRAM, ONCE A DAY(FOR 34 MONTHS)
     Route: 065
  12. TRAMETINIB [Concomitant]
     Active Substance: TRAMETINIB
     Indication: Astrocytoma

REACTIONS (1)
  - Drug ineffective [Unknown]
